FAERS Safety Report 21491058 (Version 1)
Quarter: 2022Q4

REPORT INFORMATION
  Report Type: Spontaneous
  Country: US (occurrence: US)
  Receive Date: 20221021
  Receipt Date: 20221021
  Transmission Date: 20230113
  Serious: No
  Sender: FDA-Public Use
  Company Number: US-CELLTRION INC.-2022US011135

PATIENT

DRUGS (12)
  1. INFLECTRA [Suspect]
     Active Substance: INFLIXIMAB-DYYB
     Indication: Product used for unknown indication
     Dosage: 530 MILLIGRAM
     Route: 042
  2. AMLODIPINE [Concomitant]
     Active Substance: AMLODIPINE BESYLATE
  3. ASPIRIN [Concomitant]
     Active Substance: ASPIRIN
  4. ATORVASTATIN [Concomitant]
     Active Substance: ATORVASTATIN
  5. AZATHIOPRINE [Concomitant]
     Active Substance: AZATHIOPRINE
  6. CARVEDILOL [Concomitant]
     Active Substance: CARVEDILOL
  7. LISINOPRIL [Concomitant]
     Active Substance: LISINOPRIL
  8. VITAMINS NOS [Concomitant]
     Active Substance: VITAMINS
  9. PREDNISONE [Concomitant]
     Active Substance: PREDNISONE
  10. ZINC [Concomitant]
     Active Substance: ZINC
  11. VITAMIN B12 [Concomitant]
     Active Substance: CYANOCOBALAMIN
  12. VITAMIN D3 [Concomitant]
     Active Substance: CHOLECALCIFEROL

REACTIONS (1)
  - Unevaluable event [Unknown]
